FAERS Safety Report 4515562-3 (Version None)
Quarter: 2004Q4

REPORT INFORMATION
  Report Type: 
  Country: None (occurrence: None)
  Receive Date: 20040929
  Receipt Date: 20030829
  Transmission Date: 20050328
  Serious: Yes (Hospitalization)
  Sender: FDA-Public Use
  Company Number: 2003US005577

PATIENT
  Age: 53 Year
  Sex: Female
  Weight: 68.5 kg

DRUGS (8)
  1. AMBISOME [Suspect]
     Indication: FUNGAEMIA
     Dosage: 340 MG, INTRAVENOUS
     Route: 042
     Dates: start: 20030812, end: 20030818
  2. AMBISOME [Suspect]
     Indication: FUNGAEMIA
     Dosage: 340 MG, INTRAVENOUS
     Route: 042
     Dates: start: 20030821, end: 20030821
  3. AMBISOME [Suspect]
     Indication: FUNGAEMIA
     Dosage: 340 MG, INTRAVENOUS
     Route: 042
     Dates: start: 20030824, end: 20030824
  4. FAMVIR [Concomitant]
  5. DECADRON [Concomitant]
  6. VANCOMYCIN [Concomitant]
  7. NYSTATIN [Concomitant]
  8. PERCOCET [Concomitant]

REACTIONS (1)
  - BLOOD BILIRUBIN INCREASED [None]
